FAERS Safety Report 10413391 (Version 2)
Quarter: 2014Q3

REPORT INFORMATION
  Report Type: Spontaneous
  Country: US (occurrence: US)
  Receive Date: 20140827
  Receipt Date: 20140923
  Transmission Date: 20150326
  Serious: Yes (Other)
  Sender: FDA-Public Use
  Company Number: CHPA2014US011105

PATIENT
  Age: 61 Year
  Sex: Male

DRUGS (2)
  1. CONTROL STEP 1 21MG [Suspect]
     Active Substance: NICOTINE
     Indication: SMOKING CESSATION THERAPY
     Dosage: 1 DF, QD
     Route: 062
  2. NICOTINE. [Concomitant]
     Active Substance: NICOTINE

REACTIONS (3)
  - Feeling abnormal [Unknown]
  - Arterial occlusive disease [Unknown]
  - Nicotine dependence [Not Recovered/Not Resolved]
